FAERS Safety Report 7122380-9 (Version None)
Quarter: 2010Q4

REPORT INFORMATION
  Report Type: 
  Country: None (occurrence: None)
  Receive Date: 20101124
  Receipt Date: 20101117
  Transmission Date: 20110411
  Serious: Yes (Hospitalization)
  Sender: FDA-Public Use
  Company Number: US-ABBOTT-10P-163-0686393-01

PATIENT
  Sex: Female

DRUGS (10)
  1. HUMIRA [Suspect]
     Indication: CROHN'S DISEASE
  2. ESOMEPRAZOLE MAGNESIUM [Concomitant]
     Indication: GASTROOESOPHAGEAL REFLUX DISEASE
     Dates: start: 19880101
  3. LEVOFLOXACIN [Concomitant]
     Indication: CROHN'S DISEASE
     Dates: start: 20080101
  4. CYANOCOBALAMIN [Concomitant]
     Indication: ANAEMIA
     Route: 058
     Dates: start: 20080301
  5. CYANOCOBALAMIN [Concomitant]
     Dosage: ONE SPRAY IN NOSTRIL
     Route: 045
     Dates: start: 20080908
  6. SACCHARATED IRON OXIDE [Concomitant]
     Indication: ANAEMIA
     Route: 042
     Dates: start: 20080801
  7. METHYLPREDNISOLONE [Concomitant]
     Indication: PROPHYLAXIS
     Dates: start: 20080901
  8. SUCCINIC ACID [Concomitant]
     Indication: ANAEMIA
     Dates: start: 20080909
  9. POTASSIUM CHLORIDE [Concomitant]
     Indication: MINERAL SUPPLEMENTATION
     Dates: start: 20080901
  10. NASCOBAL [Concomitant]
     Indication: ANAEMIA
     Dosage: 1 SPRAY IN NOSTRIL
     Dates: start: 20080908

REACTIONS (1)
  - COLECTOMY [None]
